FAERS Safety Report 7142730-7 (Version None)
Quarter: 2010Q4

REPORT INFORMATION
  Report Type: 
  Country: None (occurrence: None)
  Receive Date: 20101207
  Receipt Date: 20101127
  Transmission Date: 20110411
  Serious: Yes (Hospitalization, Other)
  Sender: FDA-Public Use
  Company Number: US-ABBOTT-10P-163-0688720-00

PATIENT
  Age: 15 Year
  Sex: Female

DRUGS (1)
  1. FERROUS SULFATE [Suspect]
     Indication: INTENTIONAL OVERDOSE
     Dosage: 60 ENTERIC-COATED TABLETS OVER 4 HRS

REACTIONS (10)
  - ACUTE HEPATIC FAILURE [None]
  - COMA [None]
  - HEPATIC NECROSIS [None]
  - HEPATORENAL SYNDROME [None]
  - INTENTIONAL OVERDOSE [None]
  - INTRACRANIAL PRESSURE INCREASED [None]
  - LIVER TRANSPLANT [None]
  - MENTAL STATUS CHANGES [None]
  - THERAPEUTIC AGENT TOXICITY [None]
  - VOMITING [None]
